FAERS Safety Report 19062867 (Version 1)
Quarter: 2021Q1

REPORT INFORMATION
  Report Type: Spontaneous
  Country: US (occurrence: US)
  Receive Date: 20210326
  Receipt Date: 20210326
  Transmission Date: 20210420
  Serious: Yes (Death, Hospitalization, Other)
  Sender: FDA-Public Use
  Company Number: US-PFIZER INC-2021288588

PATIENT
  Age: 63 Year
  Sex: Male

DRUGS (1)
  1. SUTENT [Suspect]
     Active Substance: SUNITINIB MALATE
     Dosage: 50 MG
     Dates: start: 20210226, end: 20210303

REACTIONS (6)
  - Dyspnoea [Unknown]
  - Cardio-respiratory arrest [Fatal]
  - Sepsis [Unknown]
  - Respiratory failure [Unknown]
  - Aortic valve incompetence [Unknown]
  - Neoplasm progression [Unknown]
